FAERS Safety Report 9140090 (Version 1)
Quarter: 2013Q1

REPORT INFORMATION
  Report Type: Spontaneous
  Country: US (occurrence: US)
  Receive Date: 20130305
  Receipt Date: 20130305
  Transmission Date: 20140127
  Serious: No
  Sender: FDA-Public Use
  Company Number: US-BAYER-2013-023405

PATIENT
  Sex: Male

DRUGS (1)
  1. KOGENATE FS [Suspect]

REACTIONS (5)
  - Gastrointestinal disorder [None]
  - Diarrhoea [None]
  - Muscle spasms [None]
  - Abdominal discomfort [None]
  - Pain [None]
